FAERS Safety Report 4724866-0 (Version None)
Quarter: 2005Q3

REPORT INFORMATION
  Report Type: 
  Country: None (occurrence: None)
  Receive Date: 20050720
  Receipt Date: 20050720
  Transmission Date: 20060218
  Serious: Yes (Hospitalization)
  Sender: FDA-Public Use
  Company Number: None

PATIENT
  Age: 56 Year
  Sex: Male
  Weight: 97.5234 kg

DRUGS (12)
  1. MORPHINE SULFATE [Suspect]
     Indication: ARTHRALGIA
     Dosage: 15MG SA 1 BID PO
     Route: 048
     Dates: start: 20050613, end: 20050615
  2. VIAGRA [Concomitant]
  3. BACTRIM [Concomitant]
  4. FLUVASTATIN [Concomitant]
  5. HYDROCHLOROTHIAZIDE [Concomitant]
  6. OMEPRAZOLE [Concomitant]
  7. LORTAB [Concomitant]
  8. AMLODIPINE [Concomitant]
  9. TRAZODONE HCL [Concomitant]
  10. INSULIN [Concomitant]
  11. CITALOPRAM [Concomitant]
  12. LOSARTAN [Concomitant]

REACTIONS (4)
  - BLOOD POTASSIUM INCREASED [None]
  - LOSS OF CONSCIOUSNESS [None]
  - RESPIRATORY FAILURE [None]
  - WHITE BLOOD CELL DISORDER [None]
